FAERS Safety Report 7417899-7 (Version None)
Quarter: 2011Q2

REPORT INFORMATION
  Report Type: 
  Country: None (occurrence: None)
  Receive Date: 20110406
  Receipt Date: 20110325
  Transmission Date: 20111010
  Serious: Yes (Other)
  Sender: FDA-Public Use
  Company Number: 026678

PATIENT
  Sex: Female
  Weight: 55 kg

DRUGS (6)
  1. PREDNISOLONE [Concomitant]
  2. ACETAMINOPHEN [Concomitant]
  3. FOLIC ACID [Concomitant]
  4. CIMZIA [Suspect]
     Indication: RHEUMATOID ARTHRITIS
     Dosage: 9200 MG 1X/2 WEEKS SUBCUTANEOUS)
     Route: 058
     Dates: start: 20101027
  5. METHOTREXATE [Concomitant]
  6. IBUFEN [Concomitant]

REACTIONS (1)
  - RASH [None]
